FAERS Safety Report 7096106-1 (Version None)
Quarter: 2010Q4

REPORT INFORMATION
  Report Type: 
  Country: None (occurrence: None)
  Receive Date: 20101111
  Receipt Date: 20091225
  Transmission Date: 20110411
  Serious: No
  Sender: FDA-Public Use
  Company Number: US-B.I. PHARMACEUTICALS,INC./RIDGEFIELD-2009-BP-14879BP

PATIENT
  Sex: Female

DRUGS (3)
  1. ZANTAC 150 [Suspect]
     Indication: GASTRIC DISORDER
     Dosage: 150 MG
     Route: 048
     Dates: start: 20091225
  2. ADVAIR DISKUS 100/50 [Concomitant]
     Indication: ASTHMA
  3. PROVENTIL [Concomitant]
     Indication: ASTHMA

REACTIONS (1)
  - URTICARIA [None]
